FAERS Safety Report 20150349 (Version 1)
Quarter: 2021Q4

REPORT INFORMATION
  Report Type: Spontaneous
  Country: US (occurrence: US)
  Receive Date: 20211206
  Receipt Date: 20211206
  Transmission Date: 20220303
  Serious: No
  Sender: FDA-Public Use
  Company Number: US-BAUSCH-BL-2021-040106

PATIENT
  Sex: Female
  Weight: 70.370 kg

DRUGS (1)
  1. LUMIFY [Suspect]
     Active Substance: BRIMONIDINE TARTRATE
     Indication: Ocular hyperaemia
     Dosage: HAD BEEN USING FOR OVER 3 YEARS
     Route: 047
     Dates: start: 2018, end: 20211128

REACTIONS (2)
  - Instillation site pain [Unknown]
  - Product quality issue [Unknown]

NARRATIVE: CASE EVENT DATE: 20211126
